FAERS Safety Report 8879636 (Version 2)
Quarter: 2012Q4

REPORT INFORMATION
  Report Type: 
  Country: CA (occurrence: CA)
  Receive Date: 20121031
  Receipt Date: 20121119
  Transmission Date: 20130627
  Serious: Yes (Other)
  Sender: FDA-Public Use
  Company Number: CA-GLAXOSMITHKLINE-A0998400A

PATIENT
  Sex: Female
  Weight: 70.5 kg

DRUGS (6)
  1. PAXIL [Suspect]
     Indication: ANXIETY
     Route: 065
  2. PAROXETINE [Suspect]
     Indication: ANXIETY
     Route: 065
  3. CLONAZEPAM [Concomitant]
  4. ARIMIDEX [Concomitant]
  5. ATENOLOL [Concomitant]
  6. DIOVAN HCT [Concomitant]

REACTIONS (12)
  - Breast cancer [Unknown]
  - Dependence [Unknown]
  - Withdrawal syndrome [Unknown]
  - Paraesthesia [Unknown]
  - Feeling of despair [Unknown]
  - Stress [Unknown]
  - Depression [Unknown]
  - Economic problem [Unknown]
  - Abnormal behaviour [Unknown]
  - Tachyphrenia [Unknown]
  - Palpitations [Unknown]
  - Anxiety [Unknown]
